FAERS Safety Report 7653787-9 (Version None)
Quarter: 2011Q3

REPORT INFORMATION
  Report Type: 
  Country: None (occurrence: None)
  Receive Date: 20110803
  Receipt Date: 20110720
  Transmission Date: 20111222
  Serious: Yes (Hospitalization)
  Sender: FDA-Public Use
  Company Number: DE-GLAXOSMITHKLINE-B0736084A

PATIENT
  Sex: Female
  Weight: 68 kg

DRUGS (3)
  1. UNKNOWN MEDICATION [Concomitant]
     Dosage: 45MG THREE TIMES PER DAY
     Route: 042
     Dates: start: 20110710, end: 20110714
  2. TOPOTECAN [Suspect]
     Indication: CERVIX CARCINOMA
     Dosage: .75MGM2 CYCLIC
     Route: 042
  3. CISPLATIN [Suspect]
     Indication: CERVIX CARCINOMA
     Dosage: 50MGM2 CYCLIC
     Route: 042

REACTIONS (1)
  - LOSS OF CONSCIOUSNESS [None]
